FAERS Safety Report 8790650 (Version 2)
Quarter: 2012Q4

REPORT INFORMATION
  Report Type: Spontaneous
  Country: US (occurrence: None)
  Receive Date: 20120906
  Receipt Date: 20121002
  Transmission Date: 20130627
  Serious: Yes (Life-Threatening, Other)
  Sender: FDA-Public Use
  Company Number: 2012P1055010

PATIENT
  Age: 39 Year
  Sex: Female
  Weight: 86.18 kg

DRUGS (7)
  1. ACETAMINOPHEN\DIPHENHYDRAMINE [Suspect]
     Dosage: 2 tablets; once; po
     Route: 048
     Dates: start: 20120819, end: 20120819
  2. BENADRYL [Suspect]
     Dosage: 50 MG;QID PRN;PO
X1;PO
X1;IV
     Dates: start: 20120820, end: 20120820
  3. UNSPECIFIED INGREDIENT [Suspect]
  4. TAGAMET [Suspect]
  5. ZOFRAN [Suspect]
  6. ATIVAN [Suspect]
  7. ZYRTEC [Concomitant]

REACTIONS (11)
  - Reaction to drug excipients [None]
  - Substance-induced psychotic disorder [None]
  - Blood potassium decreased [None]
  - Fatigue [None]
  - Blister [None]
  - Anxiety [None]
  - Pruritus [None]
  - Urticaria [None]
  - Oedema peripheral [None]
  - Swollen tongue [None]
  - Throat tightness [None]
